FAERS Safety Report 4978797-1 (Version None)
Quarter: 2006Q2

REPORT INFORMATION
  Report Type: 
  Country: None (occurrence: None)
  Receive Date: 20060420
  Receipt Date: 20051004
  Transmission Date: 20061013
  Serious: Yes (Hospitalization)
  Sender: FDA-Public Use
  Company Number: US-MERCK-0510USA03546

PATIENT
  Age: 69 Year
  Sex: Female
  Weight: 61 kg

DRUGS (1)
  1. VIOXX [Suspect]
     Indication: ARTHRITIS
     Route: 048
     Dates: start: 20030501, end: 20040101

REACTIONS (16)
  - ABDOMINAL PAIN [None]
  - ACUTE MYOCARDIAL INFARCTION [None]
  - ACUTE SINUSITIS [None]
  - BACK PAIN [None]
  - CARDIOVASCULAR DISORDER [None]
  - CONSTIPATION [None]
  - CORONARY ARTERY DISEASE [None]
  - DIZZINESS [None]
  - HEADACHE [None]
  - HERPETIC GINGIVOSTOMATITIS [None]
  - LARYNGOSPASM [None]
  - MUSCULOSKELETAL DISORDER [None]
  - NAUSEA [None]
  - OSTEOPOROSIS [None]
  - THROMBOSIS [None]
  - VERTIGO [None]
